FAERS Safety Report 6642211-0 (Version None)
Quarter: 2010Q1

REPORT INFORMATION
  Report Type: 
  Country: None (occurrence: None)
  Receive Date: 20100319
  Receipt Date: 20100309
  Transmission Date: 20100710
  Serious: Yes (Hospitalization)
  Sender: FDA-Public Use
  Company Number: FR-ELI_LILLY_AND_COMPANY-FR201003002268

PATIENT
  Age: 65 Year
  Sex: Female

DRUGS (12)
  1. BYETTA [Suspect]
     Indication: DIABETES MELLITUS
     Dosage: 5 UG, 2/D
     Route: 058
     Dates: start: 20091101
  2. DORYX [Concomitant]
     Dosage: 4 MG, DAILY (1/D)
     Route: 048
  3. LASILIX [Concomitant]
     Dosage: 40 MG, 4/D
     Route: 048
  4. NOVOMIX                            /01475801/ [Concomitant]
  5. CACIT [Concomitant]
  6. TEMERIT                            /01339101/ [Concomitant]
  7. LOXEN [Concomitant]
  8. CRESTOR [Concomitant]
  9. PREVISCAN [Concomitant]
  10. NEURONTIN [Concomitant]
  11. FUMAFER [Concomitant]
  12. SPECIAFOLDINE [Concomitant]

REACTIONS (2)
  - OFF LABEL USE [None]
  - RENAL FAILURE ACUTE [None]
